FAERS Safety Report 9525355 (Version 1)
Quarter: 2013Q1

REPORT INFORMATION
  Report Type: Spontaneous
  Country: US (occurrence: None)
  Receive Date: 20130305
  Receipt Date: 20130305
  Transmission Date: 20140127
  Serious: Yes (Hospitalization)
  Sender: FDA-Public Use
  Company Number: 163-21880-12022968

PATIENT
  Age: 64 Year
  Sex: Female
  Weight: 70.31 kg

DRUGS (33)
  1. REVLIMID [Suspect]
     Indication: PLASMA CELL MYELOMA
     Dosage: 10 MG, CAPSULE, 21 IN 21 D, PO
     Dates: start: 20110922
  2. ADVAIR (SERETIDE MITE) [Concomitant]
  3. ALBUTEROL (SALBUTAMOL) [Concomitant]
  4. ASA (ACETYLSALICYLIC ACID) [Concomitant]
  5. CALCIUM [Concomitant]
  6. CARDIZEM (DILTIAZEM HYDROCHLORIDE) [Concomitant]
  7. CRESTOR (ROSUVASTATIN) [Concomitant]
  8. FERROUS SULFATE [Concomitant]
  9. FISH OIL [Concomitant]
  10. FLAXSEED OIL (LINSEED OIL) [Concomitant]
  11. GABAPENTIN [Concomitant]
  12. MULTIVITAMINS [Concomitant]
  13. NEXIUM [Concomitant]
  14. POTASSIUM [Concomitant]
  15. SINGULAIR (MONTELUKAST SODIUM) [Concomitant]
  16. VITAMIN C [Concomitant]
  17. VITAMIN D (ERGOCALCIFEROL) [Concomitant]
  18. ZOMETA (ZOLEDRONIC ACID) [Concomitant]
  19. NEURONTIN (GABAPENTIN) [Concomitant]
  20. SPIRONOLACTONE [Concomitant]
  21. DILTIAZEM [Concomitant]
  22. AVAPRO (IRBESARTAN) [Concomitant]
  23. PROTONIX [Concomitant]
  24. K-DUR (POTASSIUM CHLORIDE) [Concomitant]
  25. ADVAIR DISKUS (SERETIDE MITE) [Concomitant]
  26. EXTRA STRENGTH TYLENOL (DOZOL) [Concomitant]
  27. COUMADIN (WARFARIN SODIUM) [Concomitant]
  28. POTASSIUM CHLORIDE [Concomitant]
  29. NASONEX (MOMETASONE FUROATE) [Concomitant]
  30. VYTORIN (INEGY) [Concomitant]
  31. Z-PAK (AZITHROMYCIN) [Concomitant]
  32. MUCINEX (GUAIFENESIN) [Concomitant]
  33. PROBIOTIC (BIFIDOBACTERIUM LACTIS) [Concomitant]

REACTIONS (4)
  - Pneumonia [None]
  - Renal failure acute [None]
  - Diarrhoea [None]
  - Full blood count decreased [None]
